FAERS Safety Report 8049995-8 (Version None)
Quarter: 2012Q1

REPORT INFORMATION
  Report Type: 
  Country: None (occurrence: None)
  Receive Date: 20120117
  Receipt Date: 20120111
  Transmission Date: 20120608
  Serious: Yes (Hospitalization)
  Sender: FDA-Public Use
  Company Number: US-PFIZER INC-2012008812

PATIENT
  Sex: Male

DRUGS (2)
  1. LYRICA [Suspect]
     Indication: NEUROPATHY PERIPHERAL
     Dosage: 100 MG, 2X/DAY
     Route: 048
     Dates: start: 20080101, end: 20111027
  2. LYRICA [Suspect]
     Dosage: UNK
     Dates: start: 20111030

REACTIONS (3)
  - DEHYDRATION [None]
  - BLOOD UREA ABNORMAL [None]
  - VOMITING [None]
